FAERS Safety Report 7228535-7 (Version None)
Quarter: 2011Q1

REPORT INFORMATION
  Report Type: 
  Country: None (occurrence: None)
  Receive Date: 20110117
  Receipt Date: 20110105
  Transmission Date: 20110831
  Serious: Yes (Death, Hospitalization)
  Sender: FDA-Public Use
  Company Number: US-BIOGENIDEC-2011BI000856

PATIENT
  Age: 55 Year
  Sex: Female

DRUGS (1)
  1. TYSABRI [Suspect]
     Indication: MULTIPLE SCLEROSIS
     Route: 042
     Dates: start: 20100204, end: 20101216

REACTIONS (5)
  - RIGHT ATRIAL DILATATION [None]
  - PULMONARY EMBOLISM [None]
  - ATRIAL THROMBOSIS [None]
  - PULMONARY HYPERTENSION [None]
  - URINARY TRACT INFECTION [None]
